FAERS Safety Report 8376531-9 (Version None)
Quarter: 2012Q2

REPORT INFORMATION
  Report Type: 
  Country: None (occurrence: None)
  Receive Date: 20120522
  Receipt Date: 20120516
  Transmission Date: 20120825
  Serious: Yes (Hospitalization)
  Sender: FDA-Public Use
  Company Number: US-BAYER-2012-049554

PATIENT
  Age: 35 Year
  Sex: Female
  Weight: 59 kg

DRUGS (6)
  1. BEYAZ [Suspect]
  2. YAZ [Suspect]
  3. TOPIRAMATE [Concomitant]
     Dosage: 100 MG, UNK
     Dates: start: 20071117, end: 20110707
  4. VITAMIN D [Concomitant]
     Dosage: UNK
     Dates: start: 20110921
  5. YASMIN [Suspect]
     Indication: MENSTRUATION IRREGULAR
     Dosage: UNK
     Dates: end: 20110927
  6. MULTI-VITAMIN [Concomitant]
     Dosage: UNK
     Dates: start: 20110921

REACTIONS (1)
  - DEEP VEIN THROMBOSIS [None]
